FAERS Safety Report 5782154 (Version 5)
Quarter: 2014Q3

REPORT INFORMATION
  Report Type: Spontaneous
  Country: US (occurrence: US)
  Receive Date: 20050426
  Receipt Date: 20140812
  Transmission Date: 20150326
  Serious: Yes (Other)
  Sender: FDA-Public Use
  Company Number: PHEH2004US13544

PATIENT
  Age: 88 Year
  Sex: Female

DRUGS (10)
  1. VOLTAREN ^NOVARTIS^ [Concomitant]
     Dosage: 50 MG, UNK
  2. XANAX [Concomitant]
     Active Substance: ALPRAZOLAM
     Dosage: 12 MG, UNK
  3. COENZYME Q10 [Concomitant]
     Active Substance: UBIDECARENONE
     Dosage: UNK UKN, UNK
  4. AREDIA [Suspect]
     Active Substance: PAMIDRONATE DISODIUM
     Indication: OSTEOPOROSIS
     Dosage: 30MG OVER 2HRS IN 250CCNS
     Route: 042
     Dates: start: 20040503, end: 20041101
  5. CELEBREX [Suspect]
     Active Substance: CELECOXIB
     Dosage: UNK UKN, UNK
  6. FLONASE [Concomitant]
     Active Substance: FLUTICASONE PROPIONATE
     Dosage: UNK UKN, UNK
  7. AMINO ACIDS NOS [Concomitant]
     Dosage: UNK UKN, UNK
  8. REFRESH [Concomitant]
     Active Substance: UNSPECIFIED INGREDIENT
     Dosage: UNK UKN, UNK
  9. LIPITOR [Concomitant]
     Active Substance: ATORVASTATIN CALCIUM
     Dosage: 5 MG, UNK
  10. VITAMINS [Concomitant]
     Active Substance: VITAMINS
     Dosage: UNK UKN, UNK

REACTIONS (22)
  - Optic ischaemic neuropathy [Unknown]
  - Visual field defect [Not Recovered/Not Resolved]
  - Diplopia [Unknown]
  - Skin burning sensation [Unknown]
  - Rash pruritic [Unknown]
  - Rash [Not Recovered/Not Resolved]
  - Eye irritation [Unknown]
  - Swollen tongue [Recovered/Resolved]
  - Injection site pain [Unknown]
  - Rash pustular [Unknown]
  - Pain [Not Recovered/Not Resolved]
  - Blindness unilateral [Recovered/Resolved]
  - Pyrexia [Unknown]
  - Visual impairment [Not Recovered/Not Resolved]
  - Eye pain [Not Recovered/Not Resolved]
  - Urinary retention [Unknown]
  - Injection site reaction [Unknown]
  - Visual acuity reduced [Not Recovered/Not Resolved]
  - Condition aggravated [Not Recovered/Not Resolved]
  - Blood pressure increased [Unknown]
  - Nausea [Unknown]
  - Rash macular [Unknown]

NARRATIVE: CASE EVENT DATE: 20040701
